FAERS Safety Report 5502491-1 (Version None)
Quarter: 2007Q4

REPORT INFORMATION
  Report Type: 
  Country: None (occurrence: None)
  Receive Date: 20071030
  Receipt Date: 20071018
  Transmission Date: 20080405
  Serious: Yes (Other)
  Sender: FDA-Public Use
  Company Number: DE-PFIZER INC-2007089512

PATIENT
  Sex: Female
  Weight: 60 kg

DRUGS (2)
  1. CABERGOLINE [Suspect]
     Indication: PARKINSONISM
     Dosage: DAILY DOSE:10MG
  2. L-DOPA [Concomitant]

REACTIONS (6)
  - AORTIC VALVE INCOMPETENCE [None]
  - AORTIC VALVE SCLEROSIS [None]
  - LEFT VENTRICULAR DYSFUNCTION [None]
  - MITRAL VALVE INCOMPETENCE [None]
  - MITRAL VALVE SCLEROSIS [None]
  - TRICUSPID VALVE INCOMPETENCE [None]
